FAERS Safety Report 8790741 (Version 1)
Quarter: 2012Q4

REPORT INFORMATION
  Report Type: Spontaneous
  Country: US (occurrence: None)
  Receive Date: 20120913
  Receipt Date: 20120913
  Transmission Date: 20130627
  Serious: Yes (Hospitalization)
  Sender: FDA-Public Use
  Company Number: None

PATIENT
  Age: 35 Year
  Sex: Female
  Weight: 113.5 kg

DRUGS (2)
  1. IRON [Suspect]
     Indication: DEPRESSION
     Dosage: stat
     Route: 048
     Dates: start: 20120519
  2. IRON [Suspect]
     Indication: SUICIDE ATTEMPT
     Dosage: stat
     Route: 048
     Dates: start: 20120519

REACTIONS (6)
  - Overdose [None]
  - Suicide attempt [None]
  - Lactic acidosis [None]
  - Acute hepatic failure [None]
  - Gastrointestinal haemorrhage [None]
  - Coagulopathy [None]
